FAERS Safety Report 6768056-9 (Version None)
Quarter: 2010Q2

REPORT INFORMATION
  Report Type: 
  Country: None (occurrence: None)
  Receive Date: 20100614
  Receipt Date: 20100602
  Transmission Date: 20101027
  Serious: Yes (Hospitalization)
  Sender: FDA-Public Use
  Company Number: B0660214A

PATIENT
  Age: 48 Year
  Sex: Male

DRUGS (5)
  1. ZIDOVUDINE [Suspect]
     Indication: ANTIRETROVIRAL THERAPY
     Route: 065
  2. ABACAVIR [Suspect]
     Indication: ANTIRETROVIRAL THERAPY
     Route: 065
  3. LAMIVUDINE-HIV [Suspect]
     Indication: ANTIRETROVIRAL THERAPY
     Route: 065
  4. LOPINAVIR/RITONAVIR [Concomitant]
     Indication: ANTIRETROVIRAL THERAPY
     Route: 065
  5. DIDANOSINE [Concomitant]
     Indication: ANTIRETROVIRAL THERAPY
     Route: 065

REACTIONS (5)
  - ABDOMINAL PAIN UPPER [None]
  - ANAEMIA [None]
  - ENZYME ABNORMALITY [None]
  - LIPASE ABNORMAL [None]
  - PANCREATITIS ACUTE [None]
